FAERS Safety Report 7430736-X (Version None)
Quarter: 2011Q2

REPORT INFORMATION
  Report Type: 
  Country: None (occurrence: None)
  Receive Date: 20110421
  Receipt Date: 20110415
  Transmission Date: 20111010
  Serious: Yes (Hospitalization)
  Sender: FDA-Public Use
  Company Number: DE-US-EMD SERONO, INC.-7036318

PATIENT
  Sex: Female

DRUGS (2)
  1. REBIF [Suspect]
     Indication: MULTIPLE SCLEROSIS
     Route: 058
     Dates: start: 20101106, end: 20110101
  2. AMITRYPTILIN [Concomitant]

REACTIONS (2)
  - LYMPHOPENIA [None]
  - NON-HODGKIN'S LYMPHOMA [None]
